FAERS Safety Report 24972100 (Version 1)
Quarter: 2025Q1

REPORT INFORMATION
  Report Type: Spontaneous
  Country: US (occurrence: US)
  Receive Date: 20250214
  Receipt Date: 20250214
  Transmission Date: 20250408
  Serious: Yes (Other)
  Sender: MERCK SHARP & DOHME LLC
  Company Number: US-009507513-2254659

PATIENT
  Sex: Male
  Weight: 77.1 kg

DRUGS (31)
  1. SOTATERCEPT [Suspect]
     Active Substance: SOTATERCEPT
     Indication: Product used for unknown indication
     Route: 065
  2. SOTATERCEPT [Suspect]
     Active Substance: SOTATERCEPT
  3. SOTATERCEPT [Suspect]
     Active Substance: SOTATERCEPT
  4. SOTATERCEPT [Suspect]
     Active Substance: SOTATERCEPT
  5. RETACRIT [Concomitant]
     Active Substance: EPOETIN ALFA-EPBX
  6. DOCUSATE SODIUM [Concomitant]
     Active Substance: DOCUSATE SODIUM
  7. MOMETASONE FUROATE [Concomitant]
     Active Substance: MOMETASONE FUROATE
  8. VITAMIN B12 [Concomitant]
     Active Substance: CYANOCOBALAMIN
  9. JARDIANCE [Concomitant]
     Active Substance: EMPAGLIFLOZIN
  10. TYLENOL ARTHRITIS PAIN [Concomitant]
     Active Substance: ACETAMINOPHEN
  11. METOPROLOL SUCCINATE [Concomitant]
     Active Substance: METOPROLOL SUCCINATE
  12. NASONEX [Concomitant]
     Active Substance: MOMETASONE FUROATE
  13. FLUTICASONE PROPIONATE [Concomitant]
     Active Substance: FLUTICASONE PROPIONATE
  14. FLUOCINONIDE [Concomitant]
     Active Substance: FLUOCINONIDE
  15. OXYGEN [Concomitant]
     Active Substance: OXYGEN
  16. FLUOCINOLONE ACETONIDE [Concomitant]
     Active Substance: FLUOCINOLONE ACETONIDE
  17. TRAZODONE HCL [Concomitant]
     Active Substance: TRAZODONE HYDROCHLORIDE
  18. TORSEMIDE [Concomitant]
     Active Substance: TORSEMIDE
  19. MUCINEX [Concomitant]
     Active Substance: GUAIFENESIN
  20. AMBRISENTAN [Concomitant]
     Active Substance: AMBRISENTAN
  21. EPOGEN [Concomitant]
     Active Substance: ERYTHROPOIETIN
  22. TYVASO DPI [Suspect]
     Active Substance: TREPROSTINIL
     Indication: Pulmonary arterial hypertension
     Route: 050
  23. COENZYME Q10 [Concomitant]
     Active Substance: DIETARY SUPPLEMENT\UBIDECARENONE
  24. PRAVASTATIN SODIUM [Concomitant]
     Active Substance: PRAVASTATIN SODIUM
  25. MECLIZINE HYDROCHLORIDE [Concomitant]
     Active Substance: MECLIZINE HYDROCHLORIDE
  26. CLARITIN [Concomitant]
     Active Substance: LORATADINE
  27. VITAMIN D3 [Concomitant]
     Active Substance: CHOLECALCIFEROL
  28. EPINEPHRINE [Concomitant]
     Active Substance: EPINEPHRINE
  29. FOLIC ACID [Concomitant]
     Active Substance: FOLIC ACID
  30. ADEMPAS [Concomitant]
     Active Substance: RIOCIGUAT
  31. EPLERENONE [Concomitant]
     Active Substance: EPLERENONE

REACTIONS (1)
  - Rectal haemorrhage [Recovered/Resolved]
